FAERS Safety Report 9028713 (Version 1)
Quarter: 2013Q1

REPORT INFORMATION
  Report Type: Spontaneous
  Country: FR (occurrence: FR)
  Receive Date: 20130124
  Receipt Date: 20130124
  Transmission Date: 20140127
  Serious: Yes (Hospitalization)
  Sender: FDA-Public Use
  Company Number: FR-ABBOTT-13P-056-1036615-00

PATIENT
  Age: 55 Year
  Sex: Male

DRUGS (9)
  1. NORVIR [Suspect]
     Indication: HIV INFECTION
     Route: 048
     Dates: start: 20090113
  2. PREZISTA [Suspect]
     Indication: HIV INFECTION
     Route: 048
     Dates: start: 20090113
  3. TRUVADA [Suspect]
     Indication: HIV INFECTION
     Dosage: DF: 200/245 MG
     Route: 048
     Dates: start: 20090113
  4. ISENTRESS [Suspect]
     Indication: HIV INFECTION
     Route: 048
     Dates: start: 20090113
  5. VALDOXAN [Concomitant]
     Indication: PRODUCT USED FOR UNKNOWN INDICATION
     Dosage: 2.5 YEARS
  6. LEXOMIL [Concomitant]
     Indication: PRODUCT USED FOR UNKNOWN INDICATION
  7. STILNOX [Concomitant]
     Indication: PRODUCT USED FOR UNKNOWN INDICATION
  8. ATHYMIL [Concomitant]
     Indication: PRODUCT USED FOR UNKNOWN INDICATION
  9. FRACTAL [Concomitant]
     Indication: PRODUCT USED FOR UNKNOWN INDICATION
     Dates: start: 200703

REACTIONS (1)
  - Deafness bilateral [Not Recovered/Not Resolved]
